FAERS Safety Report 18568635 (Version 1)
Quarter: 2020Q4

REPORT INFORMATION
  Report Type: Spontaneous
  Country: US (occurrence: US)
  Receive Date: 20201201
  Receipt Date: 20201201
  Transmission Date: 20210114
  Serious: Yes (Hospitalization)
  Sender: FDA-Public Use
  Company Number: None

PATIENT
  Age: 26 Year
  Sex: Female
  Weight: 79.2 kg

DRUGS (1)
  1. AZATHIOPRINE. [Suspect]
     Active Substance: AZATHIOPRINE
     Indication: CROHN^S DISEASE
     Route: 048
     Dates: start: 20201009, end: 20201029

REACTIONS (5)
  - Vomiting [None]
  - Nausea [None]
  - Abdominal pain [None]
  - Pancreatitis [None]
  - Lipase increased [None]

NARRATIVE: CASE EVENT DATE: 20201029
